FAERS Safety Report 7889346-2 (Version None)
Quarter: 2011Q4

REPORT INFORMATION
  Report Type: 
  Country: None (occurrence: None)
  Receive Date: 20111103
  Receipt Date: 20100624
  Transmission Date: 20120403
  Serious: No
  Sender: FDA-Public Use
  Company Number: US-BAYER-201026354NA

PATIENT
  Sex: Female

DRUGS (1)
  1. AVELOX [Suspect]
     Indication: PYREXIA
     Dosage: 400 MG, QD
     Route: 048

REACTIONS (2)
  - PALPITATIONS [None]
  - HYPERSENSITIVITY [None]
